FAERS Safety Report 24248677 (Version 1)
Quarter: 2024Q3

REPORT INFORMATION
  Report Type: Spontaneous
  Country: ES (occurrence: ES)
  Receive Date: 20240826
  Receipt Date: 20240826
  Transmission Date: 20241016
  Serious: Yes (Hospitalization)
  Sender: NOVARTIS
  Company Number: None

PATIENT
  Age: 50 Year
  Sex: Male

DRUGS (2)
  1. CARBAMAZEPINE [Interacting]
     Active Substance: CARBAMAZEPINE
     Indication: Myoclonic epilepsy
     Dosage: 200 MG, Q12H (1 COMPRIMIDO EN DESAYUNO Y CENA)
     Route: 048
     Dates: start: 20240420, end: 20240613
  2. AMIODARONE HYDROCHLORIDE [Interacting]
     Active Substance: AMIODARONE HYDROCHLORIDE
     Indication: Atrial flutter
     Dosage: 1000 MG, QW (30 COMPRIMIDOS, 5 COMPRIMIDOS CADA 7 D?AS)
     Route: 048
     Dates: start: 20180710, end: 20240614

REACTIONS (1)
  - Atrioventricular block complete [Recovered/Resolved]

NARRATIVE: CASE EVENT DATE: 20240612
